FAERS Safety Report 5851850-6 (Version None)
Quarter: 2008Q3

REPORT INFORMATION
  Report Type: 
  Country: None (occurrence: None)
  Receive Date: 20080819
  Receipt Date: 20080804
  Transmission Date: 20090109
  Serious: Yes (Death, Life-Threatening)
  Sender: FDA-Public Use
  Company Number: 2007S1010438

PATIENT
  Age: 35 Year
  Sex: Male

DRUGS (12)
  1. DIAZEPAM [Suspect]
     Indication: DRUG USE FOR UNKNOWN INDICATION
     Dosage: 4 MG; 3 TIMES A DAY; ORAL
     Route: 048
     Dates: end: 20071015
  2. DURAGESIC-100 [Suspect]
     Indication: DRUG USE FOR UNKNOWN INDICATION
     Dosage: EVERY HOUR; TRANSDERMAL
     Route: 062
     Dates: end: 20071005
  3. TRAMADOL HCL [Suspect]
     Indication: DRUG USE FOR UNKNOWN INDICATION
     Dosage: 100 MG; AS NEEDED
     Dates: end: 20071005
  4. TEMAZEPAM [Suspect]
     Indication: DRUG USE FOR UNKNOWN INDICATION
     Dosage: 10 MG; ORAL
     Route: 048
     Dates: end: 20071005
  5. AMOXICILLIN [Concomitant]
  6. BUSCOPAN [Concomitant]
  7. CITALOPRAM HYDROBROMIDE [Concomitant]
  8. CYCLIZINE [Concomitant]
  9. OMEPRAZOLE [Concomitant]
  10. ACETAMINOPHEN [Concomitant]
  11. TEGRETOL [Concomitant]
  12. IRON [Concomitant]

REACTIONS (3)
  - CONFUSIONAL STATE [None]
  - HEPATIC ENCEPHALOPATHY [None]
  - OESOPHAGEAL HAEMORRHAGE [None]
